FAERS Safety Report 9478747 (Version 1)
Quarter: 2013Q3

REPORT INFORMATION
  Report Type: Spontaneous
  Country: FR (occurrence: FR)
  Receive Date: 20130827
  Receipt Date: 20130827
  Transmission Date: 20140515
  Serious: Yes (Life-Threatening)
  Sender: FDA-Public Use
  Company Number: FR-ABBOTT-13P-056-1137556-00

PATIENT
  Sex: 0

DRUGS (2)
  1. HUMIRA [Suspect]
     Indication: CROHN^S DISEASE
     Dates: start: 201302
  2. HUMIRA [Suspect]
     Dates: start: 201306

REACTIONS (3)
  - Pleurisy [Unknown]
  - Staphylococcal infection [Unknown]
  - Peritonitis [Unknown]
